FAERS Safety Report 16470778 (Version 2)
Quarter: 2019Q4

REPORT INFORMATION
  Report Type: Spontaneous
  Country: US (occurrence: US)
  Receive Date: 20190624
  Receipt Date: 20191021
  Transmission Date: 20200122
  Serious: Yes (Hospitalization, Other)
  Sender: FDA-Public Use
  Company Number: US-VERTEX PHARMACEUTICALS-2019-005718

PATIENT
  Age: 14 Year
  Sex: Male
  Weight: 38 kg

DRUGS (16)
  1. ZENPEP [Concomitant]
     Active Substance: PANCRELIPASE AMYLASE\PANCRELIPASE LIPASE\PANCRELIPASE PROTEASE
     Dosage: 3 WITH MEALS AND 2 WITH SNACKS
  2. CAYSTON [Concomitant]
     Active Substance: AZTREONAM
  3. CHOLECALCIFEROL [Concomitant]
     Active Substance: CHOLECALCIFEROL
     Dosage: UNK, BID
     Route: 048
  4. URSODIOL. [Concomitant]
     Active Substance: URSODIOL
     Dosage: UNK UNK, BID
     Route: 048
  5. LINEZOLID. [Concomitant]
     Active Substance: LINEZOLID
  6. LIDOCAINE/PRILOCAINE [Concomitant]
     Active Substance: LIDOCAINE\PRILOCAINE
     Dosage: 1 APPLICATION TOPICAL, PRN
     Route: 061
  7. ALBUTEROL [SALBUTAMOL] [Concomitant]
     Active Substance: ALBUTEROL
     Dosage: UNK, BID
  8. SYMDEKO [Suspect]
     Active Substance: IVACAFTOR\TEZACAFTOR
     Indication: CYSTIC FIBROSIS
     Dosage: 100MG TEZACAFTOR/150MG IVACAFTOR AM; 150MG IVACAFTOR PM
     Route: 048
     Dates: start: 20180609
  9. SODIUM CHLORIDE. [Concomitant]
     Active Substance: SODIUM CHLORIDE
     Dosage: 4 MILLILITER, VIAL
  10. PHENYLEPHRINE [Concomitant]
     Active Substance: PHENYLEPHRINE HYDROCHLORIDE
     Dosage: UNK, TID FOR 4 DAYS
  11. CYPROHEPTADINE. [Concomitant]
     Active Substance: CYPROHEPTADINE
     Dosage: UNK, TID WITH MEALS
     Route: 048
  12. FLONASE [Concomitant]
     Active Substance: FLUTICASONE PROPIONATE
     Dosage: 1 SPRAY NOSTRIL EACH, BID
  13. PULMOZYME [Concomitant]
     Active Substance: DORNASE ALFA
  14. DOXYCYCLINE. [Concomitant]
     Active Substance: DOXYCYCLINE
  15. TOBI [Concomitant]
     Active Substance: TOBRAMYCIN
  16. LEVOFLOXACIN. [Concomitant]
     Active Substance: LEVOFLOXACIN
     Dosage: UNK

REACTIONS (2)
  - Sinus disorder [Unknown]
  - Infective pulmonary exacerbation of cystic fibrosis [Not Recovered/Not Resolved]

NARRATIVE: CASE EVENT DATE: 2019
